FAERS Safety Report 18507349 (Version 2)
Quarter: 2021Q1

REPORT INFORMATION
  Report Type: Report from Study
  Country: CR (occurrence: CR)
  Receive Date: 20201116
  Receipt Date: 20210127
  Transmission Date: 20210419
  Serious: Yes (Other)
  Sender: FDA-Public Use
  Company Number: CR-BAYER-2020-242699

PATIENT
  Age: 20 Year
  Sex: Female

DRUGS (3)
  1. OMEPRAZOLE. [Concomitant]
     Active Substance: OMEPRAZOLE
     Indication: GASTRITIS
     Dosage: 1 TABLET DAILY ON AN EMPTY STOMACH
     Dates: start: 2019
  2. NEXAVAR [Suspect]
     Active Substance: SORAFENIB
     Indication: RENAL CELL CARCINOMA
     Dosage: 400 MG DAILY
     Route: 048
     Dates: start: 20200901, end: 20201228
  3. IRBESARTAN. [Concomitant]
     Active Substance: IRBESARTAN
     Indication: PROPHYLAXIS
     Dosage: 75 MG PO EVERY NIGHT
     Dates: start: 2019

REACTIONS (6)
  - Colitis [Recovered/Resolved with Sequelae]
  - Abdominal pain [Not Recovered/Not Resolved]
  - Gastric hypermotility [Recovered/Resolved with Sequelae]
  - Off label use [None]
  - Abdominal discomfort [Recovered/Resolved with Sequelae]
  - Constipation [Not Recovered/Not Resolved]

NARRATIVE: CASE EVENT DATE: 202009
